FAERS Safety Report 5063561-8 (Version None)
Quarter: 2006Q3

REPORT INFORMATION
  Report Type: 
  Country: None (occurrence: None)
  Receive Date: 20060727
  Receipt Date: 20040331
  Transmission Date: 20061208
  Serious: Yes (Disabling)
  Sender: FDA-Public Use
  Company Number: CH-ROCHE-370850

PATIENT
  Age: 41 Year
  Sex: Male
  Weight: 90 kg

DRUGS (4)
  1. PEG-INTERFERON A-2A (RO 25-8310) [Suspect]
     Route: 058
     Dates: start: 20021001, end: 20030311
  2. RIBAVIRIN [Suspect]
     Dosage: FREQUENCY REPORTED AS 2-0-3.
     Route: 048
     Dates: start: 20021001, end: 20030318
  3. AMITRIPTYLINE HYDROCHLORIDE [Concomitant]
     Dates: start: 20030303, end: 20030407
  4. DAFALGAN [Concomitant]
     Dates: start: 20021001

REACTIONS (17)
  - AGGRESSION [None]
  - ASTHENIA [None]
  - BORDERLINE PERSONALITY DISORDER [None]
  - DEPRESSION [None]
  - DERMATITIS [None]
  - DRY SKIN [None]
  - ECONOMIC PROBLEM [None]
  - ECZEMA [None]
  - EMOTIONAL DISORDER [None]
  - FEAR [None]
  - FEELING ABNORMAL [None]
  - IRRITABILITY [None]
  - LOSS OF EMPLOYMENT [None]
  - NERVOUSNESS [None]
  - PERIODONTITIS [None]
  - PRURIGO [None]
  - SOCIAL AVOIDANT BEHAVIOUR [None]
